FAERS Safety Report 15124160 (Version 1)
Quarter: 2018Q3

REPORT INFORMATION
  Report Type: Spontaneous
  Country: US (occurrence: US)
  Receive Date: 20180710
  Receipt Date: 20180710
  Transmission Date: 20181010
  Serious: No
  Sender: FDA-Public Use
  Company Number: US-BIOGEN-2018BI00605065

PATIENT
  Sex: Female

DRUGS (1)
  1. TYSABRI [Suspect]
     Active Substance: NATALIZUMAB
     Indication: MULTIPLE SCLEROSIS
     Dosage: INFUSED FOR OVER 1 HOUR
     Route: 042
     Dates: start: 20160204

REACTIONS (5)
  - Hypophagia [Not Recovered/Not Resolved]
  - Fatigue [Unknown]
  - Infusion site hyperaesthesia [Unknown]
  - Infusion site scar [Not Recovered/Not Resolved]
  - Skin discolouration [Unknown]
